FAERS Safety Report 7153944-4 (Version None)
Quarter: 2010Q4

REPORT INFORMATION
  Report Type: 
  Country: None (occurrence: None)
  Receive Date: 20101213
  Receipt Date: 20101207
  Transmission Date: 20110411
  Serious: Yes (Disabling, Other)
  Sender: FDA-Public Use
  Company Number: PT-PFIZER INC-2010165808

PATIENT
  Age: 60 Year
  Sex: Male

DRUGS (1)
  1. CELECOXIB [Suspect]

REACTIONS (2)
  - ABASIA [None]
  - DERMATITIS ALLERGIC [None]
